FAERS Safety Report 8815152 (Version 1)
Quarter: 2012Q4

REPORT INFORMATION
  Report Type: 
  Country: US (occurrence: US)
  Receive Date: 20120928
  Receipt Date: 20120928
  Transmission Date: 20130627
  Serious: Yes (Other)
  Sender: FDA-Public Use
  Company Number: US-BAYER-2012-100025

PATIENT
  Age: 74 Year
  Sex: Female
  Weight: 54 kg

DRUGS (1)
  1. ALKA-SELTZER PLUS DAY COLD [Suspect]
     Indication: NASAL CONGESTION
     Dosage: 2 UNK, UNK
     Route: 048
     Dates: start: 20120915, end: 20120918

REACTIONS (1)
  - Faeces discoloured [Not Recovered/Not Resolved]
